FAERS Safety Report 22368468 (Version 1)
Quarter: 2023Q2

REPORT INFORMATION
  Report Type: Spontaneous
  Country: GB (occurrence: GB)
  Receive Date: 20230525
  Receipt Date: 20230525
  Transmission Date: 20230721
  Serious: Yes (Hospitalization)
  Sender: FDA-Public Use
  Company Number: GB-PERRIGO-23GB005995

PATIENT
  Age: 15 Year
  Sex: Female

DRUGS (1)
  1. ACETAMINOPHEN [Suspect]
     Active Substance: ACETAMINOPHEN
     Indication: Product used for unknown indication
     Dosage: HALF OF THE TABLETS IN THE PACKET
     Route: 065
     Dates: start: 202305

REACTIONS (2)
  - Adverse event [Unknown]
  - Overdose [Unknown]
